FAERS Safety Report 15477212 (Version 5)
Quarter: 2019Q1

REPORT INFORMATION
  Report Type: Spontaneous
  Country: US (occurrence: US)
  Receive Date: 20181009
  Receipt Date: 20190219
  Transmission Date: 20190417
  Serious: No
  Sender: FDA-Public Use
  Company Number: US-PFIZER INC-2018220682

PATIENT
  Age: 51 Year
  Sex: Female
  Weight: 83.46 kg

DRUGS (6)
  1. LYRICA [Suspect]
     Active Substance: PREGABALIN
     Indication: FIBROMYALGIA
     Dosage: 600 MG, DAILY (TAKES 1 IN THE MORNING, 1 AT LUNCH AND 2 AT NIGHT)
     Dates: end: 201901
  2. LYRICA [Suspect]
     Active Substance: PREGABALIN
     Indication: HEMIPLEGIA
     Dosage: 150 MG, THRICE DAILY
     Route: 048
     Dates: start: 20181203
  3. LYRICA [Suspect]
     Active Substance: PREGABALIN
     Indication: NEUROPATHY PERIPHERAL
  4. LYRICA [Suspect]
     Active Substance: PREGABALIN
     Indication: NERVE INJURY
  5. LYRICA [Suspect]
     Active Substance: PREGABALIN
     Indication: RESTLESS LEGS SYNDROME
  6. LYRICA [Suspect]
     Active Substance: PREGABALIN
     Indication: NEURALGIA
     Dosage: 150 MG, FOUR TIMES DAILY
     Route: 048
     Dates: start: 2013, end: 2018

REACTIONS (2)
  - Product use issue [Unknown]
  - Insomnia [Not Recovered/Not Resolved]

NARRATIVE: CASE EVENT DATE: 2013
